FAERS Safety Report 21697483 (Version 1)
Quarter: 2022Q4

REPORT INFORMATION
  Report Type: Spontaneous
  Country: DE (occurrence: DE)
  Receive Date: 20221208
  Receipt Date: 20221208
  Transmission Date: 20230113
  Serious: No
  Sender: FDA-Public Use
  Company Number: None

PATIENT
  Sex: Male

DRUGS (1)
  1. MYCOPHENOLATE MOFETIL [Suspect]
     Active Substance: MYCOPHENOLATE MOFETIL
     Indication: Product used for unknown indication
     Dosage: 500 MILLIGRAM, FILM-COATED TABLET
     Route: 065

REACTIONS (4)
  - Dysphagia [Unknown]
  - Oesophageal discomfort [Unknown]
  - Illness [Unknown]
  - Wrong technique in product usage process [Unknown]
